FAERS Safety Report 5774428-1 (Version None)
Quarter: 2008Q2

REPORT INFORMATION
  Report Type: 
  Country: None (occurrence: None)
  Receive Date: 20080616
  Receipt Date: 20080604
  Transmission Date: 20081010
  Serious: Yes (Hospitalization, Other)
  Sender: FDA-Public Use
  Company Number: GB-PFIZER INC-2008038838

PATIENT
  Sex: Male

DRUGS (24)
  1. CHANTIX [Suspect]
     Indication: SMOKING CESSATION THERAPY
     Route: 048
     Dates: start: 20080308, end: 20080415
  2. ANTIPSYCHOTICS [Concomitant]
  3. FOLIC ACID [Concomitant]
  4. SERTRALINE [Concomitant]
     Route: 048
  5. VALPROATE SODIUM [Concomitant]
  6. ZOLPIDEM [Concomitant]
     Route: 048
  7. QUETIAPINE FUMARATE [Concomitant]
     Route: 048
  8. LISINOPRIL [Concomitant]
     Route: 048
  9. ASPIRIN [Concomitant]
  10. SENNA [Concomitant]
     Route: 048
  11. LACTULOSE [Concomitant]
  12. ZUCLOPENTHIXOL [Concomitant]
  13. CLONAZEPAM [Concomitant]
  14. REBOXETINE [Concomitant]
     Route: 048
  15. LANSOPRAZOLE [Concomitant]
     Route: 048
  16. PROCYCLIDINE HYDROCHLORIDE 2MG TAB [Concomitant]
  17. METHADONE HCL [Concomitant]
  18. ALL OTHER THERAPEUTIC PRODUCTS [Concomitant]
     Route: 048
  19. GAVISCON [Concomitant]
  20. CLOPIXOL (DECANOATE) [Concomitant]
  21. PENFILL N [Concomitant]
  22. LANTUS [Concomitant]
  23. DEXTROSE [Concomitant]
  24. GLUCAGON [Concomitant]

REACTIONS (3)
  - BLOOD POTASSIUM INCREASED [None]
  - MALAISE [None]
  - PSYCHOTIC DISORDER [None]
